FAERS Safety Report 10100316 (Version 2)
Quarter: 2014Q2

REPORT INFORMATION
  Report Type: Spontaneous
  Country: US (occurrence: US)
  Receive Date: 20140423
  Receipt Date: 20140423
  Transmission Date: 20141212
  Serious: No
  Sender: FDA-Public Use
  Company Number: US-ENDO PHARMACEUTICALS INC.-CLON20130014

PATIENT
  Sex: Female

DRUGS (1)
  1. CLONIDINE HCL TABLETS 0.3MG [Suspect]
     Indication: HYPERTENSION
     Dosage: 0.3 MG
     Route: 048
     Dates: end: 2013

REACTIONS (5)
  - Palpitations [Unknown]
  - Nervousness [Unknown]
  - Anxiety [Unknown]
  - Headache [Unknown]
  - Drug ineffective [Recovered/Resolved]
